FAERS Safety Report 7673742-2 (Version None)
Quarter: 2011Q3

REPORT INFORMATION
  Report Type: 
  Country: None (occurrence: None)
  Receive Date: 20110810
  Receipt Date: 20110804
  Transmission Date: 20111222
  Serious: Yes (Other)
  Sender: FDA-Public Use
  Company Number: US-TEVA-259185USA

PATIENT
  Sex: Female

DRUGS (3)
  1. FLUCONAZOLE [Concomitant]
     Indication: FUNGAL INFECTION
     Dates: start: 20101130
  2. ORAL CONTRACEPTIVE NOS (BIRTH CONTROL PILLS) [Concomitant]
     Indication: CONTRACEPTION
     Route: 048
  3. CLARAVIS [Suspect]
     Dosage: 30 MILLIGRAM;
     Route: 048
     Dates: start: 20101122, end: 20101205

REACTIONS (1)
  - UNINTENDED PREGNANCY [None]
